APPROVED DRUG PRODUCT: ZINC SULFATE
Active Ingredient: ZINC SULFATE
Strength: EQ 30MG BASE/10ML (EQ 3MG BASE/ML)
Dosage Form/Route: SOLUTION;INTRAVENOUS
Application: A217624 | Product #003 | TE Code: AP
Applicant: RK PHARMA INC
Approved: Jun 10, 2025 | RLD: No | RS: No | Type: RX